FAERS Safety Report 4569055-8 (Version None)
Quarter: 2005Q1

REPORT INFORMATION
  Report Type: 
  Country: None (occurrence: None)
  Receive Date: 20050128
  Receipt Date: 20050118
  Transmission Date: 20050727
  Serious: Yes (Other)
  Sender: FDA-Public Use
  Company Number: 200410546BBE

PATIENT
  Sex: Male

DRUGS (2)
  1. HYPRHO-D [Suspect]
     Dosage: UNK
     Dates: start: 19941216
  2. THIMEROSAL ^MERTHIOLATE^ (THIMEROSAL) [Suspect]

REACTIONS (4)
  - BLOOD MERCURY ABNORMAL [None]
  - DEVELOPMENTAL DELAY [None]
  - DRUG EXPOSURE DURING PREGNANCY [None]
  - NERVOUS SYSTEM DISORDER [None]
